FAERS Safety Report 5466172-5 (Version None)
Quarter: 2007Q3

REPORT INFORMATION
  Report Type: 
  Country: None (occurrence: None)
  Receive Date: 20070924
  Receipt Date: 20070914
  Transmission Date: 20080115
  Serious: Yes (Other)
  Sender: FDA-Public Use
  Company Number: US-PFIZER INC-2007064023

PATIENT
  Sex: Female
  Weight: 72.6 kg

DRUGS (5)
  1. LIPITOR [Suspect]
     Indication: HYPERLIPIDAEMIA
     Dates: start: 20060106, end: 20070301
  2. CADUET [Suspect]
     Dosage: TEXT:10/20MG
     Route: 048
  3. VALSARTAN [Concomitant]
  4. NEXIUM [Concomitant]
  5. NORVASC [Concomitant]

REACTIONS (3)
  - DELIRIUM TREMENS [None]
  - DIABETES MELLITUS [None]
  - TREMOR [None]
